FAERS Safety Report 17431630 (Version 1)
Quarter: 2020Q1

REPORT INFORMATION
  Report Type: Spontaneous
  Country: US (occurrence: US)
  Receive Date: 20200218
  Receipt Date: 20200218
  Transmission Date: 20200409
  Serious: Yes (Hospitalization, Other)
  Sender: FDA-Public Use
  Company Number: US-SA-2020SA042210

PATIENT
  Age: 50 Year
  Sex: Male
  Weight: 116.12 kg

DRUGS (5)
  1. HEPARIN [Concomitant]
     Active Substance: HEPARIN SODIUM
     Dosage: UNK
     Route: 041
  2. PLAVIX [Suspect]
     Active Substance: CLOPIDOGREL BISULFATE
     Indication: CORONARY ARTERY DISEASE
     Dosage: UNK
     Route: 065
  3. COUMADIN [Suspect]
     Active Substance: WARFARIN SODIUM
     Indication: CORONARY ARTERY OCCLUSION
     Dosage: UNK
     Route: 048
  4. SEROQUEL [Concomitant]
     Active Substance: QUETIAPINE FUMARATE
  5. COUMADIN [Suspect]
     Active Substance: WARFARIN SODIUM
     Indication: MYOCARDIAL INFARCTION

REACTIONS (8)
  - Barrett^s oesophagus [Unknown]
  - Dry mouth [Unknown]
  - Abdominal pain [Unknown]
  - Tumour ulceration [Unknown]
  - Cholecystitis acute [Unknown]
  - Pulmonary embolism [Unknown]
  - Cholelithiasis [Unknown]
  - Overweight [Unknown]

NARRATIVE: CASE EVENT DATE: 201907
